FAERS Safety Report 8221000-X (Version None)
Quarter: 2012Q1

REPORT INFORMATION
  Report Type: 
  Country: None (occurrence: None)
  Receive Date: 20120320
  Receipt Date: 20120306
  Transmission Date: 20120608
  Serious: Yes (Life-Threatening)
  Sender: FDA-Public Use
  Company Number: IN-MYLANLABS-2012S1005265

PATIENT
  Age: 51 Year
  Sex: Male
  Weight: 70 kg

DRUGS (14)
  1. GLYCOPYRROLATE [Concomitant]
     Indication: INTERVERTEBRAL DISC OPERATION
     Route: 042
  2. ENTONOX [Concomitant]
     Indication: MAINTENANCE OF ANAESTHESIA
     Route: 065
  3. DEXMEDETOMODINE HYDROCHLORIDE [Interacting]
     Indication: MAINTENANCE OF ANAESTHESIA
     Dosage: OVER 10 MINUTES
     Route: 040
  4. DEXMEDETOMODINE HYDROCHLORIDE [Interacting]
     Dosage: 0.5 MICROG/KG/HOUR
     Route: 041
  5. PROPOFOL [Interacting]
     Dosage: 10 MG/KG/HOUR
     Route: 041
  6. ROCURONIUM BROMIDE [Concomitant]
     Indication: INDUCTION OF ANAESTHESIA
     Route: 042
  7. MIDAZOLAM [Concomitant]
     Indication: INTERVERTEBRAL DISC OPERATION
     Route: 042
  8. PROPOFOL [Interacting]
     Indication: MAINTENANCE OF ANAESTHESIA
     Route: 042
  9. FENTANYL [Suspect]
     Indication: INDUCTION OF ANAESTHESIA
     Route: 042
  10. DEXMEDETOMODINE HYDROCHLORIDE [Interacting]
     Dosage: 0.5 MICROG/KG/HOUR
     Route: 041
  11. PROPOFOL [Interacting]
     Indication: INDUCTION OF ANAESTHESIA
     Route: 042
  12. PROPOFOL [Interacting]
     Dosage: 10 MG/KG/HOUR
     Route: 041
  13. DEXMEDETOMODINE HYDROCHLORIDE [Interacting]
     Indication: INTERVERTEBRAL DISC OPERATION
     Dosage: OVER 10 MINUTES
     Route: 040
  14. AMLODIPINE [Concomitant]
     Indication: HYPERTENSION
     Dosage: 5MG
     Route: 065

REACTIONS (2)
  - POTENTIATING DRUG INTERACTION [None]
  - CARDIAC ARREST [None]
